FAERS Safety Report 10511183 (Version 3)
Quarter: 2014Q4

REPORT INFORMATION
  Report Type: Spontaneous
  Country: JP (occurrence: None)
  Receive Date: 20141008
  Receipt Date: 20141121
  Transmission Date: 20150528
  Serious: Yes (Other)
  Sender: FDA-Public Use
  Company Number: 2014JP000616

PATIENT
  Age: 63 Year
  Sex: Female
  Weight: 54 kg

DRUGS (8)
  1. WARFARIN /00014803/ [Suspect]
     Active Substance: WARFARIN
     Indication: AORTIC VALVE REPLACEMENT
     Route: 048
  2. RIONA (FERRIC CITRATE) FILM COATED TABELET [Suspect]
     Active Substance: FERRIC CITRATE ANHYDROUS
     Indication: HYPERPHOSPHATAEMIA
     Route: 048
     Dates: start: 20140916, end: 20140917
  3. ONEALFA [Suspect]
     Active Substance: ALFACALCIDOL
     Indication: VITAMIN D DEFICIENCY
     Route: 048
  4. BAYASPIRIN (ACETYLSALICYLIC ACID) (ACETYLSALICYLIC ACID) [Suspect]
     Active Substance: ASPIRIN
     Indication: ARTERIOSCLEROSIS
     Route: 048
  5. EPADEL [Suspect]
     Active Substance: ICOSAPENT
     Indication: ARTERIOSCLEROSIS
     Route: 048
  6. SENNOSIDE /00571901/ [Suspect]
     Active Substance: SENNOSIDES A AND B
     Indication: CONSTIPATION
     Route: 048
  7. ANPLAG [Suspect]
     Active Substance: SARPOGRELATE
     Indication: ARTERIOSCLEROSIS
     Route: 048
  8. REGPARA [Suspect]
     Active Substance: CINACALCET HYDROCHLORIDE
     Indication: HYPERPARATHYROIDISM SECONDARY
     Route: 048

REACTIONS (2)
  - Visual field defect [None]
  - Visual impairment [None]

NARRATIVE: CASE EVENT DATE: 20140917
